FAERS Safety Report 6147688-5 (Version None)
Quarter: 2009Q2

REPORT INFORMATION
  Report Type: 
  Country: None (occurrence: None)
  Receive Date: 20090408
  Receipt Date: 20090401
  Transmission Date: 20091009
  Serious: Yes (Other)
  Sender: FDA-Public Use
  Company Number: PHHY2009DE02639

PATIENT
  Sex: Male

DRUGS (1)
  1. AREDIA [Suspect]
     Indication: METASTASES TO BONE
     Dosage: UNK
     Route: 042
     Dates: start: 20090121, end: 20090121

REACTIONS (3)
  - CENTRAL VENOUS CATHETER REMOVAL [None]
  - DRUG ADMINISTRATION ERROR [None]
  - INJECTION SITE NECROSIS [None]
